FAERS Safety Report 8622184-1 (Version None)
Quarter: 2012Q3

REPORT INFORMATION
  Report Type: 
  Country: None (occurrence: None)
  Receive Date: 20120826
  Receipt Date: 20120814
  Transmission Date: 20120928
  Serious: Yes (Other)
  Sender: FDA-Public Use
  Company Number: GB-BRISTOL-MYERS SQUIBB COMPANY-16898553

PATIENT

DRUGS (2)
  1. TRUVADA [Suspect]
     Route: 064
     Dates: start: 20110101
  2. EFAVIRENZ [Suspect]
     Route: 064
     Dates: start: 20110101

REACTIONS (1)
  - CONGENITAL ANOMALY [None]
